FAERS Safety Report 8020193-7 (Version None)
Quarter: 2012Q1

REPORT INFORMATION
  Report Type: 
  Country: None (occurrence: None)
  Receive Date: 20120103
  Receipt Date: 20111219
  Transmission Date: 20120608
  Serious: Yes (Other)
  Sender: FDA-Public Use
  Company Number: JP-ROCHE-1024249

PATIENT

DRUGS (1)
  1. ACTEMRA [Suspect]
     Indication: RHEUMATOID ARTHRITIS

REACTIONS (37)
  - CELLULITIS [None]
  - PYELONEPHRITIS [None]
  - BASAL CELL CARCINOMA [None]
  - MENINGIOMA [None]
  - CARDIAC DISORDER [None]
  - ARTHRITIS INFECTIVE [None]
  - GASTROENTERITIS [None]
  - B-CELL LYMPHOMA [None]
  - BLADDER NEOPLASM [None]
  - PLEURAL MESOTHELIOMA [None]
  - BILE DUCT CANCER [None]
  - INFECTION [None]
  - ATYPICAL MYCOBACTERIAL INFECTION [None]
  - DIVERTICULITIS [None]
  - LYMPHOMA [None]
  - UTERINE CANCER [None]
  - LARGE INTESTINE CARCINOMA [None]
  - CERVIX CARCINOMA [None]
  - ORGANISING PNEUMONIA [None]
  - DISSEMINATED INTRAVASCULAR COAGULATION [None]
  - SEPSIS [None]
  - TUBERCULOSIS [None]
  - GASTROINTESTINAL PERFORATION [None]
  - BRONCHITIS [None]
  - ACUTE MYOCARDIAL INFARCTION [None]
  - CEREBRAL INFARCTION [None]
  - PNEUMOTHORAX [None]
  - PNEUMONIA [None]
  - SEPTIC SHOCK [None]
  - HEPATOBILIARY DISEASE [None]
  - INTERSTITIAL LUNG DISEASE [None]
  - HERPES ZOSTER [None]
  - PNEUMOCYSTIS JIROVECI PNEUMONIA [None]
  - BREAST CANCER [None]
  - SPINAL COMPRESSION FRACTURE [None]
  - GASTRIC CANCER [None]
  - LUNG NEOPLASM [None]
